FAERS Safety Report 4412958-5 (Version None)
Quarter: 2004Q3

REPORT INFORMATION
  Report Type: 
  Country: None (occurrence: None)
  Receive Date: 20040730
  Receipt Date: 20040730
  Transmission Date: 20050211
  Serious: No
  Sender: FDA-Public Use
  Company Number: None

PATIENT
  Age: 67 Year
  Sex: Male
  Weight: 113.3993 kg

DRUGS (6)
  1. MORPHINE [Suspect]
     Indication: POST PROCEDURAL PAIN
     Dosage: PCA/CONT-INFUSION 2 MG/M2 INFUSION, 2 MG PCA DONE Q 10 MIN
     Route: 042
     Dates: start: 20040427
  2. CEFAZOLIN [Concomitant]
  3. LACTATE RINGER [Concomitant]
  4. METOROLOL TARTRATE [Concomitant]
  5. SODIUM CHLORIDE INJ [Concomitant]
  6. MORPHINE SULFATE [Concomitant]

REACTIONS (1)
  - COMA [None]
